FAERS Safety Report 13287262 (Version 6)
Quarter: 2018Q1

REPORT INFORMATION
  Report Type: Spontaneous
  Country: NO (occurrence: NO)
  Receive Date: 20170302
  Receipt Date: 20180313
  Transmission Date: 20180508
  Serious: Yes (Other)
  Sender: FDA-Public Use
  Company Number: NO-OTSUKA-2017_004753

PATIENT
  Age: 43 Year
  Sex: Male

DRUGS (6)
  1. JINARC [Suspect]
     Active Substance: TOLVAPTAN
     Dosage: 45 MG, QD (IN MORNING)
     Route: 048
     Dates: start: 201609, end: 20161003
  2. JINARC [Suspect]
     Active Substance: TOLVAPTAN
     Dosage: 15 MG, QD (IN EVENING)
     Route: 048
     Dates: start: 201609, end: 20161003
  3. LOSARTAN. [Concomitant]
     Active Substance: LOSARTAN
     Indication: PRODUCT USED FOR UNKNOWN INDICATION
     Dosage: 25 MG, QD (25 MGX1)
     Route: 065
  4. JINARC [Suspect]
     Active Substance: TOLVAPTAN
     Indication: GLOMERULAR FILTRATION RATE DECREASED
     Dosage: 60 MG, QD (IN MORNING)
     Route: 048
     Dates: start: 20161003, end: 20170109
  5. JINARC [Suspect]
     Active Substance: TOLVAPTAN
     Dosage: 30 MG, QD (IN EVENING)
     Route: 048
     Dates: start: 20161003, end: 20170109
  6. AMLODIPINE [Concomitant]
     Active Substance: AMLODIPINE BESYLATE
     Indication: PRODUCT USED FOR UNKNOWN INDICATION
     Dosage: 5 MG, QD (5MGX1)
     Route: 065
     Dates: start: 20160503

REACTIONS (6)
  - Transaminases increased [Recovered/Resolved]
  - Feeling of relaxation [Recovered/Resolved]
  - Incorrect drug administration duration [Unknown]
  - Product use in unapproved indication [Unknown]
  - Hepatitis [Recovered/Resolved]
  - Hepatic cyst [Unknown]

NARRATIVE: CASE EVENT DATE: 2016
